FAERS Safety Report 19449491 (Version 1)
Quarter: 2021Q2

REPORT INFORMATION
  Report Type: Spontaneous
  Country: NL (occurrence: FR)
  Receive Date: 20210622
  Receipt Date: 20210622
  Transmission Date: 20210717
  Serious: Yes (Life-Threatening)
  Sender: FDA-Public Use
  Company Number: FR-FRESENIUS KABI-FK202106054

PATIENT
  Age: 36 Year
  Sex: Male

DRUGS (4)
  1. VANCOMYCIN [Suspect]
     Active Substance: VANCOMYCIN
     Indication: ANAESTHESIA
     Dosage: 2 G; REPORTED: BATCH/LOT NO.: {UNKNOWN}
     Route: 042
     Dates: start: 20210318, end: 20210318
  2. PROPOFOL (MANUFACTURER UNKNOWN) [Suspect]
     Active Substance: PROPOFOL
     Indication: ANAESTHESIA
     Dosage: REPORTED AS: NOT SPECIFY; REPORTED: BATCH/LOT NO.: {UNKNOWN}
     Route: 042
     Dates: start: 20210318, end: 20210318
  3. SUFENTANIL [Suspect]
     Active Substance: SUFENTANIL
     Indication: ANAESTHESIA
     Dosage: REPORTED AS: NOT SPECIFY; REPORTED: BATCH/LOT NO.: {UNKNOWN}
     Route: 042
     Dates: start: 20210318, end: 20210318
  4. ATRACURIUM BESILATE [Suspect]
     Active Substance: ATRACURIUM BESYLATE
     Indication: ANAESTHESIA
     Dosage: REPORTED AS: NOT SPECIFY; REPORTED: BATCH/LOT NO.: {UNKNOWN}
     Route: 042
     Dates: start: 20210318, end: 20210318

REACTIONS (1)
  - Anaphylactic shock [Recovered/Resolved]

NARRATIVE: CASE EVENT DATE: 20210318
